FAERS Safety Report 21685581 (Version 1)
Quarter: 2022Q4

REPORT INFORMATION
  Report Type: Spontaneous
  Country: CO (occurrence: CO)
  Receive Date: 20221206
  Receipt Date: 20221206
  Transmission Date: 20230113
  Serious: Yes (Hospitalization)
  Sender: FDA-Public Use
  Company Number: CO-ALKEM LABORATORIES LIMITED-CO-ALKEM-2022-03432

PATIENT
  Age: 8 Year
  Sex: Male

DRUGS (9)
  1. ESOMEPRAZOLE MAGNESIUM [Suspect]
     Active Substance: ESOMEPRAZOLE MAGNESIUM
     Indication: Gastritis
     Dosage: 1 MILLIGRAM/KILOGRAM/DAY
     Route: 065
  2. POLYETHYLENE GLYCOL [Suspect]
     Active Substance: POLYETHYLENE GLYCOL
     Indication: Constipation
     Dosage: 1 GRAM/KILOGRAM/DAY
     Route: 065
  3. SODIUM PICOSULFATE [Suspect]
     Active Substance: SODIUM PICOSULFATE
     Indication: Abnormal faeces
     Dosage: 6 MILLIGRAM/DAY
     Route: 065
  4. DOMPERIDONE [Suspect]
     Active Substance: DOMPERIDONE
     Indication: Impaired gastric emptying
     Dosage: 0.9 MILLIGRAM/KILOGRAM, TID
     Route: 065
  5. ERYTHROMYCIN [Suspect]
     Active Substance: ERYTHROMYCIN
     Indication: Impaired gastric emptying
     Dosage: 15 MILLIGRAM/KILOGRAM, TID
     Route: 065
  6. METOCLOPRAMIDE [Suspect]
     Active Substance: METOCLOPRAMIDE
     Indication: Impaired gastric emptying
     Dosage: 0.6 MILLIGRAM/KILOGRAM, TID
     Route: 065
  7. PRUCALOPRIDE [Suspect]
     Active Substance: PRUCALOPRIDE
     Indication: Laxative supportive care
     Dosage: 0.04 MILLIGRAM/KILOGRAM/DAY (ON DAY 42)
     Route: 065
  8. PRUCALOPRIDE [Suspect]
     Active Substance: PRUCALOPRIDE
     Dosage: 0.03 MILLIGRAM/KILOGRAM/DAY (SECOND PERIOD)
     Route: 065
  9. PRUCALOPRIDE [Suspect]
     Active Substance: PRUCALOPRIDE
     Dosage: 0.04 MILLIGRAM/KILOGRAM/DAY (ON DAY 43)
     Route: 065

REACTIONS (1)
  - Drug ineffective [Unknown]
